FAERS Safety Report 24209647 (Version 1)
Quarter: 2024Q3

REPORT INFORMATION
  Report Type: Spontaneous
  Country: JP (occurrence: JP)
  Receive Date: 20240814
  Receipt Date: 20240814
  Transmission Date: 20241017
  Serious: Yes (Other)
  Sender: RANBAXY
  Company Number: JP-SUN PHARMACEUTICAL INDUSTRIES LTD-2024R1-462685

PATIENT
  Age: 74 Year
  Sex: Male

DRUGS (1)
  1. DOCETAXEL [Suspect]
     Active Substance: DOCETAXEL\DOCETAXEL ANHYDROUS
     Indication: Extramammary Paget^s disease
     Dosage: 40 MILLIGRAM/SQ. METER, Q3W
     Route: 065

REACTIONS (3)
  - Disease progression [Unknown]
  - Renal impairment [Unknown]
  - Mucosal disorder [Unknown]
